FAERS Safety Report 25625443 (Version 1)
Quarter: 2025Q3

REPORT INFORMATION
  Report Type: Report from Study
  Country: CA (occurrence: CA)
  Receive Date: 20250731
  Receipt Date: 20250731
  Transmission Date: 20251020
  Serious: Yes (Hospitalization, Other)
  Sender: TAKEDA
  Company Number: CA-TAKEDA-2025TUS066646

PATIENT
  Age: 58 Year
  Sex: Female

DRUGS (7)
  1. VEDOLIZUMAB [Suspect]
     Active Substance: VEDOLIZUMAB
     Indication: Crohn^s disease
  2. PREDNISONE [Concomitant]
     Active Substance: PREDNISONE
  3. ZOPICLONE [Concomitant]
     Active Substance: ZOPICLONE
  4. DILTIAZEM [Concomitant]
     Active Substance: DILTIAZEM
  5. RABEPRAZOLE [Concomitant]
     Active Substance: RABEPRAZOLE
  6. BUTRANS [Concomitant]
     Active Substance: BUPRENORPHINE
  7. ASPIRIN [Concomitant]
     Active Substance: ASPIRIN

REACTIONS (2)
  - Femur fracture [Recovering/Resolving]
  - Fall [Recovering/Resolving]

NARRATIVE: CASE EVENT DATE: 20250707
